FAERS Safety Report 8434731-3 (Version None)
Quarter: 2012Q2

REPORT INFORMATION
  Report Type: 
  Country: None (occurrence: None)
  Receive Date: 20120614
  Receipt Date: 20120611
  Transmission Date: 20120825
  Serious: Yes (Hospitalization, Other)
  Sender: FDA-Public Use
  Company Number: ES-ELI_LILLY_AND_COMPANY-ES201206003140

PATIENT
  Sex: Male

DRUGS (1)
  1. CIALIS [Suspect]
     Dosage: 10 MG, UNK
     Dates: start: 20120301

REACTIONS (3)
  - LOSS OF CONSCIOUSNESS [None]
  - CEREBROVASCULAR ACCIDENT [None]
  - APHASIA [None]
